FAERS Safety Report 18102424 (Version 2)
Quarter: 2020Q3

REPORT INFORMATION
  Report Type: Spontaneous
  Country: US (occurrence: US)
  Receive Date: 20200803
  Receipt Date: 20200821
  Transmission Date: 20201103
  Serious: No
  Sender: FDA-Public Use
  Company Number: US-BAUSCH-BL-2020-020490

PATIENT
  Age: 65 Year
  Sex: Female
  Weight: 68.1 kg

DRUGS (2)
  1. LACRISERT [Suspect]
     Active Substance: HYDROXYPROPYL CELLULOSE
     Dosage: 1 DROP IN EACH EYE
     Route: 047
     Dates: start: 2020
  2. LACRISERT [Suspect]
     Active Substance: HYDROXYPROPYL CELLULOSE
     Indication: DRY EYE
     Dosage: ONE DROP IN EACH EYE
     Route: 047
     Dates: start: 1990, end: 202005

REACTIONS (3)
  - Headache [Not Recovered/Not Resolved]
  - Product supply issue [Unknown]
  - Intentional dose omission [Unknown]

NARRATIVE: CASE EVENT DATE: 202005
